FAERS Safety Report 8594562-0 (Version None)
Quarter: 2012Q3

REPORT INFORMATION
  Report Type: 
  Country: None (occurrence: None)
  Receive Date: 20120815
  Receipt Date: 20120808
  Transmission Date: 20120928
  Serious: Yes (Hospitalization, Other)
  Sender: FDA-Public Use
  Company Number: US-ELI_LILLY_AND_COMPANY-US201208003196

PATIENT
  Sex: Female

DRUGS (2)
  1. CYMBALTA [Suspect]
     Indication: DIABETIC NEUROPATHY
     Dosage: 60 MG, QD
  2. CYMBALTA [Suspect]
     Dosage: 60 MG, QD
     Dates: start: 20120401

REACTIONS (6)
  - ASTHENIA [None]
  - DIALYSIS [None]
  - PULMONARY OEDEMA [None]
  - GAIT DISTURBANCE [None]
  - DEMENTIA [None]
  - DECREASED APPETITE [None]
